FAERS Safety Report 8322879-3 (Version None)
Quarter: 2012Q2

REPORT INFORMATION
  Report Type: 
  Country: None (occurrence: None)
  Receive Date: 20120430
  Receipt Date: 20110516
  Transmission Date: 20120825
  Serious: Yes (Hospitalization)
  Sender: FDA-Public Use
  Company Number: US-TEVA-2011002425

PATIENT
  Sex: Female
  Weight: 105.33 kg

DRUGS (2)
  1. PROVIGIL [Suspect]
     Dosage: 200 MILLIGRAM;
     Route: 048
     Dates: start: 20100101
  2. PROVIGIL [Suspect]
     Indication: NARCOLEPSY
     Dosage: 100 MILLIGRAM;
     Route: 048
     Dates: start: 20070101

REACTIONS (3)
  - DRUG PRESCRIBING ERROR [None]
  - CATAPLEXY [None]
  - DRUG TOLERANCE [None]
